FAERS Safety Report 7465385 (Version 11)
Quarter: 2012Q4

REPORT INFORMATION
  Report Type: 
  Country: US (occurrence: US)
  Receive Date: 20100712
  Receipt Date: 20120828
  Transmission Date: 20130627
  Serious: Yes (Death, Hospitalization)
  Sender: FDA-Public Use
  Company Number: US-BAYER-201026802NA

PATIENT
  Age: 59 Year
  Sex: Male
  Weight: 115 kg

DRUGS (27)
  1. NEXAVAR [Suspect]
     Indication: HEPATIC NEOPLASM MALIGNANT
     Dosage: 200 mg, BID
     Route: 048
     Dates: start: 20091021, end: 20100628
  2. OXYCONTIN [Concomitant]
     Indication: PAIN
     Dosage: 10 mg, BID
     Route: 048
     Dates: start: 20100610
  3. PERCOCET [Concomitant]
     Indication: PAIN
     Dosage: As used dose: 5-325 MG
     Route: 048
     Dates: start: 20100610
  4. PERCOCET [Concomitant]
     Indication: PAIN
     Dosage: EVERY 4 HR - As used dose: 5-325 MG
     Route: 048
     Dates: start: 20100716, end: 20100720
  5. OMEPRAZOLE [Concomitant]
     Indication: GASTROOESOPHAGEAL REFLUX DISEASE
     Dosage: 20 mg, QD
     Route: 048
     Dates: start: 20100102
  6. NORVASC [Concomitant]
     Indication: HYPERTENSION
     Route: 048
     Dates: start: 20100319
  7. NORVASC [Concomitant]
     Indication: HYPERTENSION
     Dosage: daily dose 2.5mg
     Route: 048
     Dates: start: 20100722
  8. LIDOCAINE [Concomitant]
     Indication: INCISION SITE PAIN
     Dosage: 1 PATCH DAILY
     Route: 062
     Dates: start: 20100217, end: 20100929
  9. LIDOCAINE [Concomitant]
     Indication: INCISION SITE COMPLICATION
  10. ACYCLOVIR [ACICLOVIR] [Concomitant]
     Indication: ANTIVIRAL PROPHYLAXIS
     Dosage: Daily dose 400 mg
     Route: 048
     Dates: start: 20100122, end: 20100929
  11. ACYCLOVIR [ACICLOVIR] [Concomitant]
     Indication: PROPHYLAXIS AGAINST TRANSPLANT REJECTION
  12. RAPAMUNE [Concomitant]
     Indication: PROPHYLAXIS AGAINST TRANSPLANT REJECTION
     Dosage: Daily dose 1 mg
     Route: 048
     Dates: start: 20091202
  13. RAPAMUNE [Concomitant]
     Indication: PROPHYLAXIS AGAINST TRANSPLANT REJECTION
     Route: 048
     Dates: start: 20100716, end: 20100720
  14. RAPAMUNE [Concomitant]
     Indication: PROPHYLAXIS AGAINST TRANSPLANT REJECTION
     Dosage: 3 mg, QD
     Route: 048
     Dates: start: 20091202
  15. POLYETHYLENE GLYCOL [Concomitant]
     Indication: CONSTIPATION
     Dosage: Daily dose 17 g
     Route: 048
     Dates: start: 20090812, end: 20100929
  16. SULFAMETHOXAZOLE W/TRIMETHOPRIM [Concomitant]
     Indication: SINUSITIS
     Dosage: M-W-F - As used dose: 160-800 MG
     Route: 048
     Dates: start: 20090807
  17. MAGNESIUM OXIDE [Concomitant]
     Indication: VITAMIN SUPPLEMENTATION
     Dosage: 1-2 TABLETS DAILY
     Route: 048
     Dates: start: 20090807, end: 20100929
  18. ASA [Concomitant]
     Indication: PROPHYLAXIS
     Dosage: Daily dose 81 mg
     Route: 048
     Dates: start: 20090715, end: 20100929
  19. ASA [Concomitant]
     Indication: PROPHYLAXIS
     Dosage: UNK
  20. HYDRALAZINE [Concomitant]
     Route: 040
     Dates: start: 20100626
  21. HYDRALAZINE [Concomitant]
     Route: 040
     Dates: start: 20100716, end: 20100720
  22. MORPHINE [Concomitant]
     Route: 040
     Dates: start: 20100626
  23. TYLENOL [PARACETAMOL] [Concomitant]
     Route: 048
     Dates: start: 20100626
  24. MAGNESIUM HYDROXIDE [Concomitant]
     Dosage: UNK
     Dates: start: 20100217, end: 20100929
  25. MOXIFLOXACIN [Concomitant]
     Dosage: Daily dose 400 mg
     Dates: start: 20100702, end: 20100929
  26. OXYCODONE [Concomitant]
     Dosage: UNK
     Dates: start: 20100213, end: 20100929
  27. BACTRIM DS [Concomitant]
     Dosage: UNK
     Dates: start: 20090807, end: 20100929

REACTIONS (6)
  - Death [Fatal]
  - Cerebral ischaemia [Recovered/Resolved]
  - Convulsion [Unknown]
  - Arthralgia [Not Recovered/Not Resolved]
  - Alopecia [Not Recovered/Not Resolved]
  - Rash [Not Recovered/Not Resolved]
